FAERS Safety Report 7428410-9 (Version None)
Quarter: 2011Q2

REPORT INFORMATION
  Report Type: 
  Country: None (occurrence: None)
  Receive Date: 20110421
  Receipt Date: 20110411
  Transmission Date: 20111010
  Serious: No
  Sender: FDA-Public Use
  Company Number: PHHY2011US30256

PATIENT
  Sex: Male

DRUGS (11)
  1. TASIGNA [Suspect]
     Indication: CHRONIC MYELOID LEUKAEMIA
     Dosage: 150 MG, BID
     Dates: start: 20110315, end: 20110328
  2. TASIGNA [Suspect]
     Dosage: 200 MG, BID
     Dates: start: 20110329
  3. AMLODIPINE BESYLATE [Concomitant]
  4. LEVETIRACETAM [Concomitant]
     Dosage: UNK
  5. ENALAPRIL MALEATE [Concomitant]
  6. TERAZOSIN [Concomitant]
  7. ATIVAN [Concomitant]
  8. FLONASE [Concomitant]
  9. OMEPRAZOLE [Concomitant]
  10. ASPIRIN [Concomitant]
  11. SIMVASTATIN [Concomitant]

REACTIONS (2)
  - HANGOVER [None]
  - HEADACHE [None]
